FAERS Safety Report 23933451 (Version 1)
Quarter: 2024Q2

REPORT INFORMATION
  Report Type: Other
  Country: BR (occurrence: BR)
  Receive Date: 20240603
  Receipt Date: 20240603
  Transmission Date: 20240716
  Serious: Yes (Hospitalization)
  Sender: FDA-Public Use
  Company Number: BR-Bion-013184

PATIENT
  Age: 84 Year
  Sex: Female

DRUGS (10)
  1. DEXAMETHASONE [Suspect]
     Active Substance: DEXAMETHASONE
     Indication: Purpura
  2. CEPHALEXIN [Concomitant]
     Active Substance: CEPHALEXIN
     Indication: Purpura
  3. PREDNISONE [Concomitant]
     Active Substance: PREDNISONE
     Indication: Purpura
  4. PROMETHAZINE [Concomitant]
     Active Substance: PROMETHAZINE HYDROCHLORIDE
     Indication: Purpura
  5. AMLODIPINE [Concomitant]
     Active Substance: AMLODIPINE BESYLATE
     Indication: Hypertension
  6. LOSARTAN [Concomitant]
     Active Substance: LOSARTAN
     Indication: Hypertension
  7. HYDROCHLOROTHIAZIDE [Concomitant]
     Active Substance: HYDROCHLOROTHIAZIDE
     Indication: Hypertension
  8. MONTELUKAST [Concomitant]
     Active Substance: MONTELUKAST SODIUM
     Indication: Emphysema
  9. FORMOTEROL [Concomitant]
     Active Substance: FORMOTEROL
     Indication: Emphysema
  10. BUDESONIDE [Concomitant]
     Active Substance: BUDESONIDE
     Indication: Emphysema

REACTIONS (2)
  - Drug ineffective [Not Recovered/Not Resolved]
  - Vaccination failure [Unknown]
